FAERS Safety Report 24140676 (Version 2)
Quarter: 2024Q3

REPORT INFORMATION
  Report Type: Spontaneous
  Country: JP (occurrence: JP)
  Receive Date: 20240726
  Receipt Date: 20240729
  Transmission Date: 20241016
  Serious: Yes (Other)
  Sender: JOHNSON AND JOHNSON
  Company Number: JP-MTPC-MTPC2024-0015159

PATIENT
  Age: 72 Year
  Sex: Female

DRUGS (1)
  1. REMICADE [Suspect]
     Active Substance: INFLIXIMAB
     Indication: Enterocolitis
     Dosage: 5 MILLIGRAM/KILOGRAM, QD
     Route: 041

REACTIONS (2)
  - Cytomegalovirus enterocolitis [Recovering/Resolving]
  - Off label use [Unknown]
